FAERS Safety Report 6481604-1 (Version None)
Quarter: 2009Q4

REPORT INFORMATION
  Report Type: 
  Country: None (occurrence: None)
  Receive Date: 20091208
  Receipt Date: 20091203
  Transmission Date: 20100525
  Serious: Yes (Death)
  Sender: FDA-Public Use
  Company Number: US-ROCHE-671567

PATIENT

DRUGS (5)
  1. BEVACIZUMAB [Suspect]
     Indication: NON-SMALL CELL LUNG CANCER
     Dosage: ON DAY 1
     Route: 042
  2. CARBOPLATIN [Suspect]
     Indication: NON-SMALL CELL LUNG CANCER
     Dosage: DOSE: 6 AUC ON DAY 1
     Route: 065
  3. PACLITAXEL [Suspect]
     Indication: NON-SMALL CELL LUNG CANCER
     Dosage: FREQUENCY: ON DAY 1
     Route: 065
  4. CETUXIMAB [Suspect]
     Indication: NON-SMALL CELL LUNG CANCER
     Dosage: FREQUENCY: ON DAY 1, FOR UPTO 6 CYCLES
     Route: 065
  5. CETUXIMAB [Suspect]
     Dosage: UNTIL PROGRESSION
     Route: 065

REACTIONS (3)
  - DEATH [None]
  - INFECTION [None]
  - PULMONARY HAEMORRHAGE [None]
